FAERS Safety Report 4886734-3 (Version None)
Quarter: 2005Q4

REPORT INFORMATION
  Report Type: 
  Country: None (occurrence: None)
  Receive Date: 20051220
  Receipt Date: 20041203
  Transmission Date: 20060501
  Serious: Yes (Other)
  Sender: FDA-Public Use
  Company Number: HQWYE643808OCT04

PATIENT
  Sex: Male

DRUGS (2)
  1. EFFEXOR XR [Suspect]
     Dosage: 150 MG 1X PER 1 DAY, ORAL
     Route: 048
  2. SONATA [Concomitant]

REACTIONS (1)
  - MEDICATION RESIDUE [None]
